FAERS Safety Report 9199429 (Version 2)
Quarter: 2013Q2

REPORT INFORMATION
  Report Type: Spontaneous
  Country: US (occurrence: US)
  Receive Date: 20130329
  Receipt Date: 20130628
  Transmission Date: 20140414
  Serious: No
  Sender: FDA-Public Use
  Company Number: US-PFIZER INC-2013097315

PATIENT
  Age: 43 Year
  Sex: Male

DRUGS (3)
  1. XALKORI [Suspect]
     Indication: NON-SMALL CELL LUNG CANCER
     Dosage: 250 MG, 2X/DAY
     Route: 048
     Dates: start: 20121010, end: 20130306
  2. ENOXAPARIN [Concomitant]
     Indication: DEEP VEIN THROMBOSIS
     Dosage: 80 MG, 2X/DAY (Q12 HR)
     Route: 058
     Dates: start: 20120808
  3. ENOXAPARIN [Concomitant]
     Indication: PULMONARY EMBOLISM

REACTIONS (2)
  - Disease progression [Unknown]
  - Non-small cell lung cancer [Unknown]
